FAERS Safety Report 16260528 (Version 1)
Quarter: 2019Q2

REPORT INFORMATION
  Report Type: Spontaneous
  Country: US (occurrence: US)
  Receive Date: 20190501
  Receipt Date: 20190501
  Transmission Date: 20190711
  Serious: Yes (Hospitalization)
  Sender: FDA-Public Use
  Company Number: US-IPSEN BIOPHARMACEUTICALS, INC.-2019-06894

PATIENT
  Age: 73 Year
  Sex: Male

DRUGS (36)
  1. IBUPROFEN. [Concomitant]
     Active Substance: IBUPROFEN
  2. VIAGRA [Concomitant]
     Active Substance: SILDENAFIL CITRATE
  3. VITAMIN D2 [Concomitant]
     Active Substance: ERGOCALCIFEROL
  4. PROMETHAZINE [Concomitant]
     Active Substance: PROMETHAZINE\PROMETHAZINE HYDROCHLORIDE
  5. SOMATULINE DEPOT [Suspect]
     Active Substance: LANREOTIDE ACETATE
     Indication: CARCINOID TUMOUR
     Route: 058
     Dates: start: 20140405
  6. DHEA [Concomitant]
     Active Substance: PRASTERONE
  7. LAMOTRIGINE. [Concomitant]
     Active Substance: LAMOTRIGINE
  8. OCTREOTIDE. [Concomitant]
     Active Substance: OCTREOTIDE
  9. LOSARTAN. [Concomitant]
     Active Substance: LOSARTAN
  10. DEXAMETH PHOSPHORUS [Concomitant]
  11. METFORMIN [Concomitant]
     Active Substance: METFORMIN HYDROCHLORIDE
  12. SIMVASTATIN. [Concomitant]
     Active Substance: SIMVASTATIN
  13. LORAZEPAM. [Concomitant]
     Active Substance: LORAZEPAM
  14. SYNTHROID [Concomitant]
     Active Substance: LEVOTHYROXINE SODIUM
  15. ANASTROZOLE. [Concomitant]
     Active Substance: ANASTROZOLE
  16. AZOR [Concomitant]
     Active Substance: AMLODIPINE BESYLATE\OLMESARTAN MEDOXOMIL
  17. DONEPEZIL. [Concomitant]
     Active Substance: DONEPEZIL
  18. TESTOSTERONE CYPIONATE. [Concomitant]
     Active Substance: TESTOSTERONE CYPIONATE
  19. MYRBETRIQ [Concomitant]
     Active Substance: MIRABEGRON
  20. GLIPIZIDE. [Concomitant]
     Active Substance: GLIPIZIDE
  21. FUROSEMIDE. [Concomitant]
     Active Substance: FUROSEMIDE
  22. BUDEPRION [Concomitant]
     Active Substance: BUPROPION HYDROCHLORIDE
  23. GLIMEPIRIDE. [Concomitant]
     Active Substance: GLIMEPIRIDE
  24. HYDROCHLOROT [Concomitant]
     Active Substance: HYDROCHLOROTHIAZIDE
  25. BENICAR [Concomitant]
     Active Substance: OLMESARTAN MEDOXOMIL
  26. AMLODIPINE [Concomitant]
     Active Substance: AMLODIPINE BESYLATE
  27. LIOTHYRONINE [Concomitant]
     Active Substance: LIOTHYRONINE
  28. POTASSIUM CHLORIDE MICRO [Concomitant]
  29. LUNESTA [Concomitant]
     Active Substance: ESZOPICLONE
  30. CEPHALEXIN. [Concomitant]
     Active Substance: CEPHALEXIN
  31. PREDNISONE. [Concomitant]
     Active Substance: PREDNISONE
  32. TAMSULOSIN [Concomitant]
     Active Substance: TAMSULOSIN
  33. LEVOTHYROXINE. [Concomitant]
     Active Substance: LEVOTHYROXINE
  34. PRAMIPEXOLE. [Concomitant]
     Active Substance: PRAMIPEXOLE
  35. CYCLOBENZAPRINE. [Concomitant]
     Active Substance: CYCLOBENZAPRINE
  36. OXY WITH APAP [Concomitant]

REACTIONS (3)
  - Urinary tract infection [Not Recovered/Not Resolved]
  - Fatigue [Not Recovered/Not Resolved]
  - Product dose omission [Unknown]

NARRATIVE: CASE EVENT DATE: 201904
